FAERS Safety Report 12071818 (Version 1)
Quarter: 2016Q1

REPORT INFORMATION
  Report Type: Spontaneous
  Country: FR (occurrence: FR)
  Receive Date: 20160212
  Receipt Date: 20160212
  Transmission Date: 20160526
  Serious: Yes (Death)
  Sender: FDA-Public Use
  Company Number: FR-ACCORD-037742

PATIENT
  Age: 32 Year
  Sex: Female

DRUGS (7)
  1. METHADONE [Suspect]
     Active Substance: METHADONE HYDROCHLORIDE
  2. CLONAZEPAM. [Suspect]
     Active Substance: CLONAZEPAM
  3. OLANZAPINE. [Suspect]
     Active Substance: OLANZAPINE
  4. NITRAZEPAM [Suspect]
     Active Substance: NITRAZEPAM
  5. TROPATEPINE [Suspect]
     Active Substance: TROPATEPINE
  6. SUBUTEX [Suspect]
     Active Substance: BUPRENORPHINE HYDROCHLORIDE
  7. AMITRIPTYLINE [Suspect]
     Active Substance: AMITRIPTYLINE

REACTIONS (6)
  - Drug abuse [Fatal]
  - Pulmonary congestion [Fatal]
  - Hepatic congestion [Fatal]
  - Cerebral congestion [Fatal]
  - Spleen congestion [Fatal]
  - Pulmonary oedema [Fatal]
